FAERS Safety Report 10290648 (Version 1)
Quarter: 2014Q3

REPORT INFORMATION
  Report Type: Spontaneous
  Country: US (occurrence: None)
  Receive Date: 20140708
  Receipt Date: 20140708
  Transmission Date: 20150326
  Serious: Yes (Death, Hospitalization)
  Sender: FDA-Public Use
  Company Number: None

PATIENT
  Age: 63 Year
  Sex: Female
  Weight: 140 kg

DRUGS (17)
  1. VITAMIN D2 [Concomitant]
     Active Substance: ERGOCALCIFEROL
  2. SYNTHROID [Concomitant]
     Active Substance: LEVOTHYROXINE SODIUM
  3. LIPITOR [Concomitant]
     Active Substance: ATORVASTATIN CALCIUM
  4. CALCITRIOL. [Concomitant]
     Active Substance: CALCITRIOL
  5. HUMALOG [Concomitant]
     Active Substance: INSULIN LISPRO
  6. LOSARTAN [Concomitant]
     Active Substance: LOSARTAN
  7. OXYBUTYNIN [Concomitant]
     Active Substance: OXYBUTYNIN
  8. ZETIA [Concomitant]
     Active Substance: EZETIMIBE
  9. METHOTREXATE [Concomitant]
     Active Substance: METHOTREXATE
  10. COUMADIN [Suspect]
     Active Substance: WARFARIN SODIUM
     Indication: ATRIAL FIBRILLATION
     Route: 048
  11. AMIODARONE [Concomitant]
     Active Substance: AMIODARONE
  12. BUMEX [Concomitant]
     Active Substance: BUMETANIDE
  13. CLONIDINE. [Concomitant]
     Active Substance: CLONIDINE
  14. DILTIAZEM [Concomitant]
     Active Substance: DILTIAZEM
  15. FOLIC ACID. [Concomitant]
     Active Substance: FOLIC ACID
  16. SYMBICORT [Concomitant]
     Active Substance: BUDESONIDE\FORMOTEROL FUMARATE DIHYDRATE
  17. DUONEB NEBULIZER [Concomitant]

REACTIONS (5)
  - Nausea [None]
  - Cerebral haemorrhage [None]
  - International normalised ratio increased [None]
  - Fatigue [None]
  - Vomiting [None]

NARRATIVE: CASE EVENT DATE: 20140628
